FAERS Safety Report 11636753 (Version 1)
Quarter: 2015Q4

REPORT INFORMATION
  Report Type: Spontaneous
  Country: AR (occurrence: AR)
  Receive Date: 20151016
  Receipt Date: 20151016
  Transmission Date: 20160304
  Serious: Yes (Other)
  Sender: FDA-Public Use
  Company Number: AR-ASTRAZENECA-2015SE99535

PATIENT
  Age: 74 Year
  Sex: Female

DRUGS (5)
  1. FASLODEX [Suspect]
     Active Substance: FULVESTRANT
     Indication: BREAST CANCER
     Dosage: 1 INJ/MONTH
     Route: 030
     Dates: start: 201502, end: 20151013
  2. IRON [Concomitant]
     Active Substance: IRON
     Indication: ANAEMIA
  3. ESCITALOPRAM [Concomitant]
     Active Substance: ESCITALOPRAM OXALATE
     Indication: ANTIDEPRESSANT THERAPY
  4. CALCIUM [Concomitant]
     Active Substance: CALCIUM
  5. SINTROM [Concomitant]
     Active Substance: ACENOCOUMAROL
     Indication: ANTICOAGULATION DRUG LEVEL THERAPEUTIC

REACTIONS (3)
  - Malignant neoplasm progression [Not Recovered/Not Resolved]
  - Depressed mood [Unknown]
  - Anaemia [Unknown]

NARRATIVE: CASE EVENT DATE: 201510
